FAERS Safety Report 10064320 (Version 1)
Quarter: 2014Q2

REPORT INFORMATION
  Report Type: Spontaneous
  Country: US (occurrence: None)
  Receive Date: 20140407
  Receipt Date: 20140407
  Transmission Date: 20141212
  Serious: No
  Sender: FDA-Public Use
  Company Number: None

PATIENT
  Age: 70 Year
  Sex: Male
  Weight: 113.85 kg

DRUGS (2)
  1. DIPHENOXYLATE/ATROPINE [Suspect]
     Indication: ABDOMINAL PAIN UPPER
     Dosage: 1-2 TABS
     Dates: start: 20140404, end: 20140404
  2. DIPHENOXYLATE/ATROPINE [Suspect]
     Indication: NAUSEA
     Dosage: 1-2 TABS
     Dates: start: 20140404, end: 20140404

REACTIONS (3)
  - Abdominal pain upper [None]
  - Condition aggravated [None]
  - Drug ineffective [None]
